FAERS Safety Report 23428547 (Version 1)
Quarter: 2024Q1

REPORT INFORMATION
  Report Type: Spontaneous
  Country: SE (occurrence: SE)
  Receive Date: 20240122
  Receipt Date: 20240122
  Transmission Date: 20240410
  Serious: Yes (Other)
  Sender: FDA-Public Use
  Company Number: None

PATIENT
  Age: 31 Year
  Sex: Female

DRUGS (1)
  1. YASMIN [Suspect]
     Active Substance: DROSPIRENONE\ETHINYL ESTRADIOL
     Indication: Contraception
     Dosage: 0,03 MG/3 MG 1 G?NG PER DAG
     Route: 048
     Dates: start: 20080901, end: 20221222

REACTIONS (4)
  - Anxiety [Unknown]
  - Depression [Recovering/Resolving]
  - Migraine [Recovering/Resolving]
  - Premenstrual syndrome [Recovering/Resolving]
